FAERS Safety Report 5810972-6 (Version None)
Quarter: 2008Q3

REPORT INFORMATION
  Report Type: 
  Country: None (occurrence: None)
  Receive Date: 20080716
  Receipt Date: 20080714
  Transmission Date: 20090109
  Serious: Yes (Hospitalization)
  Sender: FDA-Public Use
  Company Number: PHHO2008DE08226

PATIENT
  Sex: Female

DRUGS (2)
  1. ZOLEDRONIC ACID [Suspect]
     Indication: BREAST CANCER
     Dosage: 4MG
     Route: 042
     Dates: start: 20070104
  2. HERCEPTIN [Suspect]
     Indication: BREAST CANCER
     Dosage: 486MG
     Route: 042
     Dates: start: 20070101

REACTIONS (2)
  - UTERINE DILATION AND CURETTAGE [None]
  - UTERINE POLYP [None]
